FAERS Safety Report 19394662 (Version 2)
Quarter: 2022Q1

REPORT INFORMATION
  Report Type: Spontaneous
  Country: ES (occurrence: ES)
  Receive Date: 20210609
  Receipt Date: 20220117
  Transmission Date: 20220423
  Serious: Yes (Life-Threatening, Hospitalization, Other)
  Sender: FDA-Public Use
  Company Number: ALC2020ES007788

PATIENT

DRUGS (5)
  1. PILOCARPINE [Suspect]
     Active Substance: PILOCARPINE
     Indication: Iris transillumination defect
     Dosage: DILUTED 0.125 PERCENT, AND TO A CONC HIGHER THAN 2 PERCE
     Route: 065
  2. MOXIFLOXACIN [Suspect]
     Active Substance: MOXIFLOXACIN
     Indication: Atypical pneumonia
     Dosage: 400 MG, QD
     Route: 048
  3. AZITHROMYCIN [Concomitant]
     Active Substance: AZITHROMYCIN
     Indication: Product used for unknown indication
     Route: 065
  4. CEFTRIAXONE [Concomitant]
     Active Substance: CEFTRIAXONE
     Indication: Product used for unknown indication
     Route: 065
  5. TAMIFLU [Concomitant]
     Active Substance: OSELTAMIVIR PHOSPHATE
     Indication: Product used for unknown indication
     Route: 065

REACTIONS (7)
  - Pneumonia [Unknown]
  - Acute respiratory distress syndrome [Unknown]
  - Iris transillumination defect [Not Recovered/Not Resolved]
  - Therapy non-responder [Unknown]
  - Influenza B virus test positive [Unknown]
  - Conjunctival hyperaemia [Unknown]
  - Miosis [Unknown]
